FAERS Safety Report 22976542 (Version 2)
Quarter: 2024Q2

REPORT INFORMATION
  Report Type: Spontaneous
  Country: GT (occurrence: GT)
  Receive Date: 20230925
  Receipt Date: 20240625
  Transmission Date: 20240716
  Serious: Yes (Death, Hospitalization, Disabling, Other)
  Sender: FDA-Public Use
  Company Number: GT-002147023-NVSC2022GT217865

PATIENT
  Age: 69 Year
  Sex: Female

DRUGS (14)
  1. FULVESTRANT [Suspect]
     Active Substance: FULVESTRANT
     Dosage: UNK, QMO (MONTHLY)
     Route: 065
  2. FULVESTRANT [Suspect]
     Active Substance: FULVESTRANT
     Indication: Breast cancer
     Dosage: UNK
     Route: 065
  3. KISQALI [Suspect]
     Active Substance: RIBOCICLIB
     Dosage: 400 MG, QD
     Route: 048
     Dates: start: 20220216
  4. KISQALI [Suspect]
     Active Substance: RIBOCICLIB
     Dosage: 400 MG, QD
     Route: 048
     Dates: start: 2022
  5. KISQALI [Suspect]
     Active Substance: RIBOCICLIB
     Dosage: 400 MG, QD
     Route: 048
     Dates: start: 202204, end: 20221210
  6. KISQALI [Suspect]
     Active Substance: RIBOCICLIB
     Dosage: 400 MG, QD
     Route: 048
  7. KISQALI [Suspect]
     Active Substance: RIBOCICLIB
     Dosage: 600 MG, QD
     Route: 048
     Dates: start: 202205
  8. KISQALI [Suspect]
     Active Substance: RIBOCICLIB
     Dosage: 600 MG, QD
     Route: 048
  9. KISQALI [Suspect]
     Active Substance: RIBOCICLIB
     Indication: Breast cancer
     Dosage: 600 MG, QD (2 TABLETS)
     Route: 048
     Dates: start: 20220216
  10. KISQALI [Suspect]
     Active Substance: RIBOCICLIB
     Dosage: UNK
     Route: 065
     Dates: start: 20221214
  11. ZOLEDRONIC ACID [Suspect]
     Active Substance: ZOLEDRONIC ACID
     Indication: Breast cancer
     Dosage: UNK, Q3MO
     Route: 065
  12. ACETAMINOPHEN [Concomitant]
     Active Substance: ACETAMINOPHEN
     Indication: Product used for unknown indication
     Dosage: UNK
     Route: 065
  13. CLONAZEPAM [Concomitant]
     Active Substance: CLONAZEPAM
     Indication: Product used for unknown indication
     Dosage: UNK ( HALF A TABLET OF CLONAZEPAM AND A FULL TABLET AT NIGHT)
     Route: 065
  14. HYALURONIC ACID [Concomitant]
     Active Substance: HYALURONIC ACID
     Indication: Product used for unknown indication
     Dosage: UNK
     Route: 065

REACTIONS (29)
  - Breast cancer metastatic [Fatal]
  - Gastritis [Unknown]
  - Pneumonia [Unknown]
  - Gait disturbance [Unknown]
  - Metastases to bone [Unknown]
  - Anaemia [Unknown]
  - Somnolence [Unknown]
  - Pain [Unknown]
  - Depression [Unknown]
  - Nausea [Recovering/Resolving]
  - Mucosal inflammation [Unknown]
  - Tongue ulceration [Unknown]
  - Disorientation [Unknown]
  - COVID-19 [Unknown]
  - Pyrexia [Unknown]
  - Oral fungal infection [Unknown]
  - Discomfort [Unknown]
  - Neck pain [Unknown]
  - Amnesia [Unknown]
  - Decreased appetite [Unknown]
  - Back pain [Unknown]
  - Asthenia [Unknown]
  - Pharyngitis [Unknown]
  - Stomatitis [Unknown]
  - Dizziness [Unknown]
  - Oropharyngeal pain [Unknown]
  - Vomiting [Recovering/Resolving]
  - Feeling abnormal [Unknown]
  - Decreased immune responsiveness [Recovering/Resolving]

NARRATIVE: CASE EVENT DATE: 20221101
